FAERS Safety Report 12610155 (Version 1)
Quarter: 2016Q3

REPORT INFORMATION
  Report Type: Spontaneous
  Country: FR (occurrence: FR)
  Receive Date: 20160801
  Receipt Date: 20160801
  Transmission Date: 20161109
  Serious: Yes (Other)
  Sender: FDA-Public Use
  Company Number: FR-TEVA-624678ISR

PATIENT
  Sex: Female

DRUGS (13)
  1. EFFENTORA 800 MICROGRAMS [Suspect]
     Active Substance: FENTANYL CITRATE
     Indication: BRAIN NEOPLASM
     Dosage: PRESCRIPTION OF FIVE TABLETS DAILY, SUSPICION OF INTAKE OF TEN TABLETS DAILY SINCE AT LEAST ONE YEAR
     Route: 002
     Dates: start: 2012
  2. OXYCONTIN [Concomitant]
     Active Substance: OXYCODONE HYDROCHLORIDE
  3. KETOPROFENE LP 100 MG [Concomitant]
  4. SUBOXONE [Concomitant]
     Active Substance: BUPRENORPHINE HYDROCHLORIDE\NALOXONE HYDROCHLORIDE
  5. OXYCONTIN [Concomitant]
     Active Substance: OXYCODONE HYDROCHLORIDE
  6. MOSCONTIN LP [Concomitant]
  7. CYMBALTA [Concomitant]
     Active Substance: DULOXETINE HYDROCHLORIDE
  8. LYSANXIA [Concomitant]
     Active Substance: PRAZEPAM
  9. ATARAX [Concomitant]
     Active Substance: HYDROXYZINE\HYDROXYZINE HYDROCHLORIDE
  10. EFFENTORA 800 MICROGRAMS [Suspect]
     Active Substance: FENTANYL CITRATE
     Indication: PAIN
  11. LUTENYL [Concomitant]
     Active Substance: NOMEGESTROL ACETATE
     Dosage: 5 MILLIGRAM DAILY; FROM 16TH TO 25TH DAY OF COURSE
  12. LYRICA [Concomitant]
     Active Substance: PREGABALIN
  13. SEROPLEX [Concomitant]
     Active Substance: ESCITALOPRAM OXALATE

REACTIONS (8)
  - Headache [Unknown]
  - Facial neuralgia [Unknown]
  - Neuralgia [Unknown]
  - Affective disorder [Unknown]
  - Overdose [Unknown]
  - No adverse event [Unknown]
  - Drug dependence [Not Recovered/Not Resolved]
  - Product use issue [Unknown]
